FAERS Safety Report 15424896 (Version 1)
Quarter: 2018Q3

REPORT INFORMATION
  Report Type: Report from Study
  Country: US (occurrence: US)
  Receive Date: 20180925
  Receipt Date: 20180925
  Transmission Date: 20181010
  Serious: Yes (Other)
  Sender: FDA-Public Use
  Company Number: US-TESARO-US-2018TSO04346

PATIENT
  Age: 69 Year
  Sex: Female

DRUGS (1)
  1. ZEJULA [Suspect]
     Active Substance: NIRAPARIB
     Indication: OVARIAN CANCER
     Dosage: 300 MG, QD
     Route: 048
     Dates: start: 20180810, end: 20180820

REACTIONS (10)
  - Dehydration [Not Recovered/Not Resolved]
  - Oral pain [Recovering/Resolving]
  - Eating disorder [Not Recovered/Not Resolved]
  - Blood magnesium decreased [Recovering/Resolving]
  - Cough [Recovering/Resolving]
  - Blood potassium decreased [Recovering/Resolving]
  - Weight decreased [Not Recovered/Not Resolved]
  - Platelet count decreased [Not Recovered/Not Resolved]
  - Carbohydrate antigen 125 increased [Not Recovered/Not Resolved]
  - White blood cell count decreased [Not Recovered/Not Resolved]

NARRATIVE: CASE EVENT DATE: 20180817
